FAERS Safety Report 7295958-X (Version None)
Quarter: 2011Q1

REPORT INFORMATION
  Report Type: 
  Country: None (occurrence: None)
  Receive Date: 20110216
  Receipt Date: 20110208
  Transmission Date: 20110831
  Serious: Yes (Death)
  Sender: FDA-Public Use
  Company Number: PL-AMGEN-POLCT2010008046

PATIENT
  Age: 61 Year
  Sex: Female

DRUGS (17)
  1. FLUCONAZOLE [Concomitant]
     Dosage: UNK
     Route: 048
     Dates: start: 20090908
  2. TOBRADEX [Concomitant]
     Dosage: UNK UNK, QID
     Dates: start: 20090510
  3. CETIRIZINE [Concomitant]
     Dosage: 10 MG, QD
     Route: 048
  4. CLARITROMYCINE [Concomitant]
     Dosage: 500 MG, QD
     Route: 048
     Dates: start: 20100504, end: 20100513
  5. IBUPROFEN [Concomitant]
     Dosage: 200 MG, PRN
     Route: 048
     Dates: start: 20100101
  6. METOPROLOL [Concomitant]
     Dosage: 2.5 MG, QD
     Route: 048
  7. OSTRAM D3 [Concomitant]
     Dosage: UNK UNK, QD
     Route: 048
     Dates: start: 20091221
  8. CALDETRIN [Concomitant]
     Dosage: UNK UNK, BID
     Route: 048
  9. DENOSUMAB [Suspect]
     Indication: METASTASES TO BONE
     Dosage: 120 MG, UNK
     Route: 058
     Dates: start: 20090730, end: 20100708
  10. ACETYLSALICYLIC ACID [Concomitant]
     Dosage: 75 MG, QD
     Route: 048
  11. HORMONES NOS [Concomitant]
     Dosage: UNK
     Dates: start: 20070101
  12. RAMIPRIL [Concomitant]
     Dosage: 25 MG, QD
     Route: 048
     Dates: start: 20080601
  13. WARFARIN SODIUM [Concomitant]
     Dosage: UNK UNK, QD
     Route: 048
     Dates: start: 20090510, end: 20100622
  14. SIMVASTATIN [Concomitant]
     Dosage: 5 MG, QD
     Route: 048
  15. BISOPROLOL [Concomitant]
     Dosage: 25 MG, QD
     Route: 048
     Dates: start: 20080601
  16. CICLOPIROX OLAMINE [Concomitant]
     Dosage: UNK UNK, BID
     Route: 061
     Dates: start: 20090908
  17. INDOCOLLYRE [Concomitant]
     Dosage: UNK UNK, QID
     Route: 047
     Dates: start: 20090510

REACTIONS (1)
  - DISEASE PROGRESSION [None]
